FAERS Safety Report 7349803-4 (Version None)
Quarter: 2011Q1

REPORT INFORMATION
  Report Type: 
  Country: None (occurrence: None)
  Receive Date: 20110309
  Receipt Date: 20110309
  Transmission Date: 20110831
  Serious: No
  Sender: FDA-Public Use
  Company Number: None

PATIENT
  Age: 42 Year
  Sex: Male

DRUGS (1)
  1. LIALDA [Suspect]
     Dates: start: 20090210, end: 20090315

REACTIONS (10)
  - COLITIS ULCERATIVE [None]
  - INFLUENZA LIKE ILLNESS [None]
  - JAUNDICE [None]
  - CHROMATURIA [None]
  - BLOOD BILIRUBIN INCREASED [None]
  - BLOOD ALKALINE PHOSPHATASE INCREASED [None]
  - ASPARTATE AMINOTRANSFERASE INCREASED [None]
  - ALANINE AMINOTRANSFERASE INCREASED [None]
  - LIVER DISORDER [None]
  - FAECES PALE [None]
